FAERS Safety Report 9669884 (Version 1)
Quarter: 2013Q4

REPORT INFORMATION
  Report Type: Report from Study
  Country: DE (occurrence: DE)
  Receive Date: 20131105
  Receipt Date: 20131105
  Transmission Date: 20140711
  Serious: No
  Sender: FDA-Public Use
  Company Number: PHHY2013DE124730

PATIENT
  Sex: Male

DRUGS (4)
  1. AMN107 [Suspect]
     Indication: CHRONIC MYELOID LEUKAEMIA
     Dosage: 600 MG, PER DAY
     Route: 048
     Dates: start: 20121024, end: 20130801
  2. ALLOPURINOL [Concomitant]
     Dates: start: 20121002
  3. L THYROXIN [Concomitant]
     Dates: start: 1998
  4. TAMSULOSIN [Concomitant]
     Dates: start: 20120801

REACTIONS (1)
  - Nausea [Unknown]
